FAERS Safety Report 8371471-3 (Version None)
Quarter: 2012Q2

REPORT INFORMATION
  Report Type: 
  Country: None (occurrence: None)
  Receive Date: 20120518
  Receipt Date: 20120508
  Transmission Date: 20120825
  Serious: Yes (Other)
  Sender: FDA-Public Use
  Company Number: NL-ABBOTT-10P-114-0633882-00

PATIENT
  Sex: Female
  Weight: 115 kg

DRUGS (18)
  1. IBUPROFEN [Concomitant]
     Indication: PAIN
     Route: 048
  2. LEUPROLIDE ACETATE [Suspect]
     Indication: BREAST CANCER
     Route: 058
     Dates: start: 20081027
  3. NEORAL [Concomitant]
     Route: 048
  4. HYDROCHLOROTHIAZIDE [Concomitant]
     Indication: OEDEMA
  5. ARAVA [Concomitant]
     Indication: RHEUMATOID ARTHRITIS
     Route: 048
     Dates: start: 20080101
  6. METHOTREXATE [Concomitant]
     Route: 048
     Dates: start: 20080101
  7. METHOTREXATE [Concomitant]
     Indication: RHEUMATOID ARTHRITIS
     Route: 058
  8. TAMOXIFEN CITRATE [Concomitant]
     Indication: BREAST CANCER
     Route: 048
     Dates: start: 20060101
  9. OMEPRAZOLE [Concomitant]
     Indication: GASTRIC DISORDER
     Route: 048
  10. HERCEPTING [Concomitant]
     Indication: BREAST CANCER
     Route: 042
     Dates: start: 20060101, end: 20080101
  11. CITALOPRAM HYDROBROMIDE [Concomitant]
     Indication: ANTIDEPRESSANT THERAPY
     Route: 048
     Dates: start: 20060101
  12. HYDROCHLOROTHIAZIDE [Concomitant]
     Indication: HYPERTENSION
     Route: 048
     Dates: start: 20060101
  13. OMEPRAZOLE [Concomitant]
     Indication: PROPHYLAXIS
  14. NEORAL [Concomitant]
     Indication: RHEUMATOID ARTHRITIS
     Dates: start: 20080101
  15. FOLIC ACID [Concomitant]
     Indication: RHEUMATOID ARTHRITIS
     Route: 048
  16. FOLIC ACID [Concomitant]
     Indication: PRODUCT USED FOR UNKNOWN INDICATION
     Dates: start: 20060101
  17. DOMPERIDON [Concomitant]
     Indication: PRODUCT USED FOR UNKNOWN INDICATION
     Route: 048
  18. NEORAL [Concomitant]
     Indication: RHEUMATOID ARTHRITIS
     Route: 048
     Dates: start: 20080101

REACTIONS (8)
  - FEELING ABNORMAL [None]
  - MENORRHAGIA [None]
  - POLYP [None]
  - WEIGHT INCREASED [None]
  - NAUSEA [None]
  - EMOTIONAL DISORDER [None]
  - DIABETES MELLITUS [None]
  - HOT FLUSH [None]
